FAERS Safety Report 9625091 (Version 4)
Quarter: 2014Q2

REPORT INFORMATION
  Report Type: Other
  Country: IT (occurrence: IT)
  Receive Date: 20131016
  Receipt Date: 20140423
  Transmission Date: 20141212
  Serious: Yes (Hospitalization)
  Sender: FDA-Public Use
  Company Number: IT-SUN PHARMACEUTICAL INDUSTRIES LTD-2013SUN04871

PATIENT
  Sex: 0

DRUGS (7)
  1. OLANZAPINA SUN 10 MG COMPRESSA [Suspect]
     Indication: PRODUCT USED FOR UNKNOWN INDICATION
     Dosage: 10 MG, TOTAL
     Route: 048
     Dates: start: 20130927, end: 20130927
  2. OLANZAPINA SUN 10 MG COMPRESSA [Suspect]
     Indication: DRUG ABUSE
     Dosage: 11 G, TOTAL
     Route: 048
     Dates: start: 20140130, end: 20140130
  3. ENTUMIN 100 MG/ML [Suspect]
     Indication: INTENTIONAL OVERDOSE
     Dosage: 30 GTT, SINGLE
     Route: 048
     Dates: start: 20140130, end: 20140130
  4. XANAX PROLONGED RELEASE TABLETS [Concomitant]
  5. TAVOR [Concomitant]
  6. AMISULPRIDE [Concomitant]
  7. SERTRALINE [Concomitant]

REACTIONS (6)
  - Muscle contractions involuntary [Recovering/Resolving]
  - Drug abuse [Recovered/Resolved]
  - Tremor [Recovering/Resolving]
  - Dyspnoea [Recovered/Resolved]
  - Asthenia [Recovered/Resolved]
  - Drug administration error [Recovering/Resolving]
